FAERS Safety Report 9261956 (Version 2)
Quarter: 2013Q2

REPORT INFORMATION
  Report Type: Spontaneous
  Country: BR (occurrence: BR)
  Receive Date: 20130429
  Receipt Date: 20130528
  Transmission Date: 20140414
  Serious: Yes (Hospitalization)
  Sender: FDA-Public Use
  Company Number: BR-B.I. PHARMACEUTICALS,INC./RIDGEFIELD-2013-BR-00453BR

PATIENT
  Sex: Male
  Weight: 96 kg

DRUGS (9)
  1. SPIRIVA RESPIMAT [Suspect]
     Indication: CHRONIC OBSTRUCTIVE PULMONARY DISEASE
     Route: 055
  2. ALENIA [Concomitant]
     Indication: CHRONIC OBSTRUCTIVE PULMONARY DISEASE
  3. COMBIVENT [Concomitant]
     Indication: DYSPNOEA
  4. METFORMINA [Concomitant]
     Indication: DIABETES MELLITUS
  5. FUROSEMIDA [Concomitant]
     Indication: DIURETIC THERAPY
  6. AAS [Concomitant]
     Indication: ANTICOAGULANT THERAPY
  7. DOXAZOSINA [Concomitant]
     Indication: DIURETIC THERAPY
  8. GLIBENCLAMIDA [Concomitant]
     Indication: DIABETES MELLITUS
  9. UNOPROST [Concomitant]
     Indication: PROSTATIC DISORDER

REACTIONS (2)
  - Cerebrovascular accident [Recovered/Resolved]
  - Amnesia [Not Recovered/Not Resolved]
